FAERS Safety Report 14097476 (Version 1)
Quarter: 2017Q4

REPORT INFORMATION
  Report Type: Spontaneous
  Country: PL (occurrence: PL)
  Receive Date: 20171017
  Receipt Date: 20171017
  Transmission Date: 20180321
  Serious: Yes (Death, Other)
  Sender: FDA-Public Use
  Company Number: PL-VISTAPHARM, INC.-VER201710-000862

PATIENT
  Age: 67 Year

DRUGS (13)
  1. MORPHINE [Suspect]
     Active Substance: MORPHINE
     Route: 048
  2. TRAMADOL. [Suspect]
     Active Substance: TRAMADOL
  3. TRAMADOL. [Suspect]
     Active Substance: TRAMADOL
     Dosage: CONTROLLED RELEASE
  4. INSULIN [Concomitant]
     Active Substance: INSULIN NOS
     Indication: TYPE 2 DIABETES MELLITUS
  5. TRAMADOL. [Suspect]
     Active Substance: TRAMADOL
  6. MORPHINE [Suspect]
     Active Substance: MORPHINE
     Indication: ABDOMINAL PAIN
     Dosage: 0.5 ML OF THE SOLUTION (2.5 MG) AS NEEDED (0.5% WATER SOLUTION)
     Route: 048
     Dates: start: 20120615
  7. MORPHINE [Suspect]
     Active Substance: MORPHINE
     Route: 048
  8. MORPHINE [Suspect]
     Active Substance: MORPHINE
     Route: 058
     Dates: start: 20120817
  9. TRAMADOL. [Suspect]
     Active Substance: TRAMADOL
  10. TRAMADOL. [Suspect]
     Active Substance: TRAMADOL
     Indication: ABDOMINAL PAIN
     Route: 048
     Dates: start: 20120606
  11. MORPHINE [Suspect]
     Active Substance: MORPHINE
  12. OXYCODONE [Suspect]
     Active Substance: OXYCODONE
     Indication: ABDOMINAL PAIN
     Dosage: CONTROLLED RELEASE TABLETS
     Dates: start: 20120807
  13. VALPROATE [Concomitant]
     Active Substance: VALPROIC ACID
     Indication: EPILEPSY

REACTIONS (7)
  - Loss of consciousness [Unknown]
  - Epilepsy [Unknown]
  - Musculoskeletal stiffness [Unknown]
  - Somnolence [Unknown]
  - Apathy [Unknown]
  - Chills [Unknown]
  - Pyrexia [Unknown]

NARRATIVE: CASE EVENT DATE: 20120621
